FAERS Safety Report 7134645-5 (Version None)
Quarter: 2010Q4

REPORT INFORMATION
  Report Type: 
  Country: None (occurrence: None)
  Receive Date: 20101203
  Receipt Date: 20101130
  Transmission Date: 20110411
  Serious: Yes (Death, Other)
  Sender: FDA-Public Use
  Company Number: PHHY2010JP75041

PATIENT
  Age: 83 Year
  Sex: Female

DRUGS (2)
  1. SANDOSTATIN [Suspect]
     Indication: VIPOMA
     Route: 058
  2. SANDOSTATIN LAR [Suspect]
     Indication: VIPOMA
     Route: 030

REACTIONS (2)
  - DEATH [None]
  - DIARRHOEA [None]
